FAERS Safety Report 8482817 (Version 8)
Quarter: 2012Q4

REPORT INFORMATION
  Report Type: 
  Country: US (occurrence: US)
  Receive Date: 20120329
  Receipt Date: 20121218
  Transmission Date: 20130627
  Serious: Yes (Hospitalization, Disabling, Other)
  Sender: FDA-Public Use
  Company Number: US-009507513-1203USA03300

PATIENT

DRUGS (4)
  1. FOSAMAX [Suspect]
     Indication: OSTEOPOROSIS
     Dosage: 10 mg, UNK
     Route: 048
     Dates: start: 19960229, end: 2002
  2. FOSAMAX [Suspect]
     Dosage: 70 mg, UNK
     Route: 048
     Dates: start: 2002, end: 200507
  3. MK-9278 [Concomitant]
     Indication: PRODUCT USED FOR UNKNOWN INDICATION
  4. HORMONES (UNSPECIFIED) [Concomitant]
     Indication: PRODUCT USED FOR UNKNOWN INDICATION
     Route: 048
     Dates: start: 1972, end: 2008

REACTIONS (47)
  - Femur fracture [Unknown]
  - Femur fracture [Unknown]
  - Gingival disorder [Unknown]
  - Gingival infection [Unknown]
  - Femur fracture [Recovered/Resolved]
  - Fall [Unknown]
  - Fall [Unknown]
  - Pelvic fracture [Recovered/Resolved]
  - Fall [Unknown]
  - Fall [Unknown]
  - Upper limb fracture [Unknown]
  - Upper limb fracture [Recovered/Resolved]
  - Fall [Unknown]
  - Arthropathy [Unknown]
  - Arthropathy [Unknown]
  - Arthropathy [Unknown]
  - Low turnover osteopathy [Unknown]
  - Pain in extremity [Unknown]
  - Tooth disorder [Unknown]
  - Blood disorder [Unknown]
  - Pulmonary mass [Unknown]
  - Fracture nonunion [Unknown]
  - Arthropathy [Unknown]
  - Osteoarthritis [Unknown]
  - Bone disorder [Unknown]
  - Osteoarthritis [Unknown]
  - Osteopenia [Unknown]
  - Tooth abscess [Unknown]
  - Tooth abscess [Unknown]
  - Tooth abscess [Unknown]
  - Cyst [Unknown]
  - Arthropathy [Unknown]
  - Chondrocalcinosis [Unknown]
  - Limb deformity [Unknown]
  - Open reduction of fracture [Unknown]
  - Hip arthroplasty [Unknown]
  - Anaemia of chronic disease [Unknown]
  - Body temperature increased [Unknown]
  - Fluid overload [Recovering/Resolving]
  - Multiple fractures [Unknown]
  - Open reduction of fracture [Unknown]
  - Medical device removal [Unknown]
  - Fracture nonunion [Recovered/Resolved]
  - Device breakage [Recovered/Resolved]
  - Medical device removal [Unknown]
  - Pain in extremity [Unknown]
  - Joint injury [Unknown]
